FAERS Safety Report 8255709-9 (Version None)
Quarter: 2012Q2

REPORT INFORMATION
  Report Type: 
  Country: None (occurrence: None)
  Receive Date: 20120403
  Receipt Date: 20120403
  Transmission Date: 20120825
  Serious: Yes (Other)
  Sender: FDA-Public Use
  Company Number: None

PATIENT
  Age: 42 Year
  Sex: Female
  Weight: 83.914 kg

DRUGS (1)
  1. ENJUVIA [Suspect]
     Indication: ATROPHIC VULVOVAGINITIS
     Dosage: 1 TABLET
     Route: 048
     Dates: start: 20120320, end: 20120402

REACTIONS (3)
  - RASH [None]
  - SCRATCH [None]
  - PRURITUS [None]
